FAERS Safety Report 11796457 (Version 1)
Quarter: 2015Q4

REPORT INFORMATION
  Report Type: Spontaneous
  Country: US (occurrence: US)
  Receive Date: 20151203
  Receipt Date: 20151203
  Transmission Date: 20160305
  Serious: No
  Sender: FDA-Public Use
  Company Number: US-SA-2015SA200650

PATIENT
  Sex: Male

DRUGS (1)
  1. KYNAMRO [Suspect]
     Active Substance: MIPOMERSEN SODIUM
     Indication: HYPERCHOLESTEROLAEMIA
     Dosage: PRE-FILLED SYRINGE?ROUTE: UNDER THE SKIN
     Route: 065

REACTIONS (1)
  - Hepatic enzyme abnormal [Unknown]
